FAERS Safety Report 5091122-3 (Version None)
Quarter: 2006Q3

REPORT INFORMATION
  Report Type: 
  Country: None (occurrence: None)
  Receive Date: 20060829
  Receipt Date: 20060817
  Transmission Date: 20061208
  Serious: Yes (Other)
  Sender: FDA-Public Use
  Company Number: PHEH2006US10557

PATIENT
  Age: 72 Year
  Sex: Female
  Weight: 68.027 kg

DRUGS (3)
  1. FEMARA [Suspect]
     Indication: BREAST CANCER
     Dosage: 2.5 MG, QD
     Route: 048
     Dates: start: 20030101
  2. VITAMINS [Concomitant]
  3. MINERALS NOS [Concomitant]

REACTIONS (4)
  - CATARACT [None]
  - DEAFNESS [None]
  - LENS IMPLANT [None]
  - SCAR [None]
